FAERS Safety Report 5314564-7 (Version None)
Quarter: 2007Q2

REPORT INFORMATION
  Report Type: 
  Country: None (occurrence: None)
  Receive Date: 20070425
  Receipt Date: 20070412
  Transmission Date: 20071010
  Serious: No
  Sender: FDA-Public Use
  Company Number: 232667K07USA

PATIENT
  Age: 32 Year
  Sex: Female

DRUGS (3)
  1. REBIF [Suspect]
     Indication: MULTIPLE SCLEROSIS
     Dosage: 44 MCG, 3 IN 1 WEEKS, SUBCUTANEOUS
     Route: 058
     Dates: start: 20070117, end: 20070221
  2. WELLBUTRIN [Concomitant]
  3. TOPAMAX [Concomitant]

REACTIONS (2)
  - DEPRESSION [None]
  - SUICIDAL IDEATION [None]
